FAERS Safety Report 25798186 (Version 1)
Quarter: 2025Q3

REPORT INFORMATION
  Report Type: Spontaneous
  Country: US (occurrence: US)
  Receive Date: 20250912
  Receipt Date: 20250912
  Transmission Date: 20251020
  Serious: Yes (Disabling, Other)
  Sender: RIGEL PHARMACEUTICALS
  Company Number: US-RIGEL-20250900056

PATIENT
  Sex: Female

DRUGS (1)
  1. TAVALISSE [Suspect]
     Active Substance: FOSTAMATINIB
     Indication: Immune thrombocytopenia
     Dosage: 100MG, BID
     Route: 048
     Dates: start: 20211026

REACTIONS (8)
  - Disability [Unknown]
  - Lymphadenopathy [Unknown]
  - Cough [Unknown]
  - White blood cell count decreased [Unknown]
  - Chronic fatigue syndrome [Unknown]
  - Fluid retention [Unknown]
  - Temperature intolerance [Unknown]
  - Nausea [Unknown]
